FAERS Safety Report 22320231 (Version 1)
Quarter: 2023Q2

REPORT INFORMATION
  Report Type: Spontaneous
  Country: BR (occurrence: BR)
  Receive Date: 20230515
  Receipt Date: 20230515
  Transmission Date: 20230721
  Serious: Yes (Hospitalization)
  Sender: FDA-Public Use
  Company Number: BR-ABBVIE-4764302

PATIENT
  Age: 13 Year
  Sex: Female
  Weight: 40 kg

DRUGS (4)
  1. HUMIRA [Suspect]
     Active Substance: ADALIMUMAB
     Indication: Crohn^s disease
     Dosage: FORM STRENGTH :40 MG; FREQUENCY TEXT: LOADING DOSE, 40 MG, 7 DAYS OF?INTERVAL
     Route: 058
     Dates: start: 202209, end: 202209
  2. MESALAMINE [Concomitant]
     Active Substance: MESALAMINE
     Indication: Crohn^s disease
     Dosage: 800 MILLIGRAM
     Route: 048
     Dates: start: 20210510
  3. AZATHIOPRINE [Concomitant]
     Active Substance: AZATHIOPRINE
     Indication: Crohn^s disease
     Dosage: 500 MILLIGRAM
     Route: 048
     Dates: start: 20210510
  4. OLANZAPINE [Suspect]
     Active Substance: OLANZAPINE
     Indication: Product used for unknown indication
     Route: 065

REACTIONS (5)
  - Presyncope [Recovered/Resolved]
  - Diarrhoea [Recovered/Resolved]
  - Malaise [Unknown]
  - Asthenia [Unknown]
  - Weight decreased [Recovered/Resolved]

NARRATIVE: CASE EVENT DATE: 20221001
